FAERS Safety Report 7032016-3 (Version None)
Quarter: 2010Q4

REPORT INFORMATION
  Report Type: 
  Country: None (occurrence: None)
  Receive Date: 20101001
  Receipt Date: 20100915
  Transmission Date: 20110411
  Serious: Yes (Other)
  Sender: FDA-Public Use
  Company Number: DSA_44019_2010

PATIENT
  Sex: Female

DRUGS (1)
  1. BUPROPION HYDROCHLORIDE [Suspect]
     Indication: AFFECTIVE DISORDER
     Dosage: (150 MG DAILY)

REACTIONS (4)
  - APHASIA [None]
  - DRUG TOXICITY [None]
  - OVERDOSE [None]
  - PARALYSIS [None]
